FAERS Safety Report 7447832-3 (Version None)
Quarter: 2011Q2

REPORT INFORMATION
  Report Type: 
  Country: None (occurrence: None)
  Receive Date: 20110429
  Receipt Date: 20101130
  Transmission Date: 20111010
  Serious: No
  Sender: FDA-Public Use
  Company Number: US-ASTRAZENECA-2009UW16768

PATIENT
  Age: 15676 Day
  Sex: Female

DRUGS (3)
  1. NEXIUM [Suspect]
     Indication: GASTROOESOPHAGEAL REFLUX DISEASE
     Route: 048
     Dates: start: 20090617
  2. PREVACID [Concomitant]
  3. ZANTAC [Concomitant]

REACTIONS (7)
  - INFLUENZA [None]
  - ABDOMINAL DISTENSION [None]
  - NASAL CONGESTION [None]
  - PANIC ATTACK [None]
  - FLATULENCE [None]
  - VOMITING [None]
  - DRUG DOSE OMISSION [None]
